FAERS Safety Report 18957472 (Version 2)
Quarter: 2021Q1

REPORT INFORMATION
  Report Type: Spontaneous
  Country: US (occurrence: US)
  Receive Date: 20210302
  Receipt Date: 20210305
  Transmission Date: 20210420
  Serious: Yes (Hospitalization, Other)
  Sender: FDA-Public Use
  Company Number: US-PFIZER INC-2021188536

PATIENT
  Age: 64 Year
  Sex: Female

DRUGS (6)
  1. LETROZOLE. [Suspect]
     Active Substance: LETROZOLE
     Indication: LEIOMYOSARCOMA
     Dosage: CYCLIC
  2. DOXORUBICIN HCL [Suspect]
     Active Substance: DOXORUBICIN HYDROCHLORIDE
     Indication: LEIOMYOSARCOMA
     Dosage: CYCLIC
  3. DOCETAXEL. [Suspect]
     Active Substance: DOCETAXEL
     Indication: LEIOMYOSARCOMA
     Dosage: UNK, CYCLIC (6 CYCLICALS)
  4. GEMCITABINE HYDROCHLORIDE. [Suspect]
     Active Substance: GEMCITABINE HYDROCHLORIDE
     Indication: LEIOMYOSARCOMA
     Dosage: 6 CYCLICALS
  5. OLARATUMAB [Suspect]
     Active Substance: OLARATUMAB
     Indication: LEIOMYOSARCOMA
     Dosage: CYCLIC
  6. IFOSFAMIDE. [Suspect]
     Active Substance: IFOSFAMIDE
     Indication: LEIOMYOSARCOMA
     Dosage: 4 CYCLICALS

REACTIONS (7)
  - Mucosal inflammation [Unknown]
  - Tachycardia [Recovering/Resolving]
  - Acidosis [Recovering/Resolving]
  - Fanconi syndrome [Recovering/Resolving]
  - Skin turgor decreased [Unknown]
  - Nephrogenic diabetes insipidus [Recovering/Resolving]
  - Nephropathy toxic [Recovering/Resolving]
